FAERS Safety Report 4371822-0 (Version None)
Quarter: 2004Q2

REPORT INFORMATION
  Report Type: 
  Country: None (occurrence: None)
  Receive Date: 20040602
  Receipt Date: 20040524
  Transmission Date: 20050107
  Serious: Yes (Other)
  Sender: FDA-Public Use
  Company Number: 2004215021US

PATIENT
  Age: 87 Year
  Sex: Female
  Weight: 61 kg

DRUGS (11)
  1. CELEBREX [Suspect]
     Indication: ARTHRITIS
     Dosage: 100 MG, QD
  2. RISPERDAL [Suspect]
     Indication: DEMENTIA
     Dosage: 3 MG, QD, ORAL
     Route: 048
  3. ALLEGRA [Concomitant]
  4. ASPIRIN [Concomitant]
  5. SENOKOT-S (DOCUSATE SODIUM, SENNA) [Concomitant]
  6. DURAGESIC [Concomitant]
  7. NEURONTIN [Concomitant]
  8. FLONASE [Concomitant]
  9. MEDROL [Concomitant]
  10. DILANTIN [Concomitant]
  11. EXELON [Concomitant]

REACTIONS (5)
  - ANXIETY [None]
  - ELECTROCARDIOGRAM QT CORRECTED INTERVAL [None]
  - ELECTROCARDIOGRAM QT PROLONGED [None]
  - HYPOTENSION [None]
  - ORTHOSTATIC HYPOTENSION [None]
